FAERS Safety Report 9620972 (Version 2)
Quarter: 2013Q4

REPORT INFORMATION
  Report Type: Spontaneous
  Country: NL (occurrence: NL)
  Receive Date: 20131015
  Receipt Date: 20131015
  Transmission Date: 20140711
  Serious: Yes (Other)
  Sender: FDA-Public Use
  Company Number: PHHY2013NL111861

PATIENT
  Age: 34 Year
  Sex: Male

DRUGS (5)
  1. CLOZAPINE [Suspect]
     Indication: SCHIZOPHRENIA
     Dosage: UNK
  2. CLOZAPINE [Suspect]
     Indication: PSYCHOTIC DISORDER
     Dosage: UNK
  3. CLOZAPINE [Suspect]
     Dosage: 50 MG, UNK
  4. CLOZAPINE [Suspect]
     Dosage: 300 MG, DAILY
  5. FLUPENTHIXOL [Concomitant]
     Dosage: UNK

REACTIONS (3)
  - Psychotic disorder [Unknown]
  - Condition aggravated [Unknown]
  - Agranulocytosis [Unknown]
